FAERS Safety Report 23167498 (Version 2)
Quarter: 2023Q4

REPORT INFORMATION
  Report Type: Spontaneous
  Country: US (occurrence: US)
  Receive Date: 20231109
  Receipt Date: 20231114
  Transmission Date: 20240110
  Serious: No
  Sender: FDA-Public Use
  Company Number: US-SA-SAC20231101001338

PATIENT
  Sex: Female
  Weight: 48.7 kg

DRUGS (1)
  1. DUPIXENT [Suspect]
     Active Substance: DUPILUMAB
     Indication: Dermatitis atopic
     Dosage: 200 MG, QOW
     Route: 058

REACTIONS (4)
  - Rebound eczema [Not Recovered/Not Resolved]
  - Skin weeping [Not Recovered/Not Resolved]
  - Swelling face [Not Recovered/Not Resolved]
  - Intentional dose omission [Not Recovered/Not Resolved]
